FAERS Safety Report 8818921 (Version 1)
Quarter: 2012Q4

REPORT INFORMATION
  Report Type: Spontaneous
  Country: US (occurrence: None)
  Receive Date: 20121004
  Receipt Date: 20121004
  Transmission Date: 20130627
  Serious: Yes (Other)
  Sender: FDA-Public Use
  Company Number: None

PATIENT
  Age: 37 Year
  Sex: Female
  Weight: 72.58 kg

DRUGS (1)
  1. CYMBALTA [Suspect]
     Indication: DEPRESSION
     Dosage: 60 mg, once daily, po
     Route: 048
     Dates: start: 20120401, end: 20121003

REACTIONS (3)
  - Alcoholism [None]
  - Alcohol abuse [None]
  - Alcoholism [None]
